FAERS Safety Report 23021938 (Version 1)
Quarter: 2023Q4

REPORT INFORMATION
  Report Type: Spontaneous
  Country: RO (occurrence: RO)
  Receive Date: 20231003
  Receipt Date: 20231003
  Transmission Date: 20240109
  Serious: Yes (Other)
  Sender: FDA-Public Use
  Company Number: None

PATIENT
  Age: 64 Year
  Sex: Female

DRUGS (4)
  1. IBUPROFEN [Suspect]
     Active Substance: IBUPROFEN
     Indication: Product used for unknown indication
     Dosage: 1200 MILLIGRAM, DAILY, 400 MILLIGRAM, 3 TIMES A DAY(400MG 3X1CPR/DAY)
     Route: 065
  2. IVABRADINE HYDROCHLORIDE [Suspect]
     Active Substance: IVABRADINE HYDROCHLORIDE
     Indication: Product used for unknown indication
     Dosage: 10 MILLIGRAM, DAILY, 5 MILLIGRAM, TWO TIMES A DAY(5MG 2X1CPR/DAY)
     Route: 065
  3. COLCHICINE [Suspect]
     Active Substance: COLCHICINE
     Indication: Product used for unknown indication
     Dosage: 1 MILLIGRAM, DAILY, 0.5 MILLIGRAM, TWO TIMES A DAY(0.5MG 2X1CPR/DAY)
     Route: 065
  4. REMDESIVIR [Concomitant]
     Active Substance: REMDESIVIR
     Indication: Antiviral treatment
     Dosage: ONCE A DAY
     Route: 065

REACTIONS (9)
  - Cardiac tamponade [Unknown]
  - Cough [Unknown]
  - Blood pressure fluctuation [Unknown]
  - Cyanosis [Unknown]
  - Somnolence [Unknown]
  - Dyspnoea [Unknown]
  - Asthenia [Unknown]
  - Tachypnoea [Unknown]
  - General physical health deterioration [Unknown]
